FAERS Safety Report 8096272-5 (Version None)
Quarter: 2012Q1

REPORT INFORMATION
  Report Type: 
  Country: None (occurrence: None)
  Receive Date: 20120129
  Receipt Date: 20111230
  Transmission Date: 20120608
  Serious: No
  Sender: FDA-Public Use
  Company Number: US-ABBOTT-12P-163-0888848-00

PATIENT
  Age: 44 Year
  Sex: Male

DRUGS (2)
  1. HUMIRA [Suspect]
     Indication: COLITIS ULCERATIVE
     Dates: start: 20111101
  2. IMURAN [Concomitant]
     Indication: COLITIS ULCERATIVE

REACTIONS (3)
  - NASAL CONGESTION [None]
  - COUGH [None]
  - RESPIRATORY TRACT CONGESTION [None]
